FAERS Safety Report 7708105-4 (Version None)
Quarter: 2011Q3

REPORT INFORMATION
  Report Type: 
  Country: None (occurrence: None)
  Receive Date: 20110825
  Receipt Date: 20110816
  Transmission Date: 20111222
  Serious: Yes (Hospitalization)
  Sender: FDA-Public Use
  Company Number: US-BIOGENIDEC-2011BI015794

PATIENT
  Age: 43 Year
  Sex: Female

DRUGS (2)
  1. AVONEX [Suspect]
     Indication: MULTIPLE SCLEROSIS
     Route: 030
     Dates: start: 20100718, end: 20110601
  2. AVONEX [Suspect]
     Route: 030
     Dates: start: 20040209, end: 20070612

REACTIONS (6)
  - FALL [None]
  - MOBILITY DECREASED [None]
  - DYSPNOEA [None]
  - LIGAMENT RUPTURE [None]
  - DRUG INEFFECTIVE [None]
  - MULTIPLE SCLEROSIS RELAPSE [None]
